FAERS Safety Report 9563510 (Version 1)
Quarter: 2013Q3

REPORT INFORMATION
  Report Type: Spontaneous
  Country: GB (occurrence: None)
  Receive Date: 20130926
  Receipt Date: 20130926
  Transmission Date: 20140515
  Serious: Yes (Disabling)
  Sender: FDA-Public Use
  Company Number: AUR-APL-2013-07790

PATIENT
  Age: 51 Year
  Sex: Male
  Weight: 134.5 kg

DRUGS (14)
  1. MIRTAZAPINE [Suspect]
     Indication: PRODUCT USED FOR UNKNOWN INDICATION
  2. ATORVASTATIN (ATORVASTATIN) [Concomitant]
  3. BUPRENORPHINE [Concomitant]
  4. CITALOPRAM (CITALOPRAM) [Concomitant]
  5. DOXAZOSIN (DOXAZOSIN) [Concomitant]
  6. FELODIPINE (FELODIPINE) [Concomitant]
  7. FERROUS SULPHATE (FERROUS SULFATE) [Concomitant]
  8. METFORMIN (METFORMIN) [Concomitant]
  9. NOVORAPID (INSULIN ASPART) [Concomitant]
  10. ORLISTAT (ORLISTAT) [Concomitant]
  11. PROPRANOLOL (PROPRANOLOL) [Concomitant]
  12. RAMIPRIL (RAMIPRIL) [Concomitant]
  13. TRAMADOL (TRAMADOL) [Concomitant]
  14. INSULATARD (INSULIN HUMAN INJECTION, ISOPHANE) [Concomitant]

REACTIONS (4)
  - Hallucinations, mixed [None]
  - Nightmare [None]
  - Visual impairment [None]
  - Blood glucose increased [None]
